FAERS Safety Report 17360033 (Version 1)
Quarter: 2020Q1

REPORT INFORMATION
  Report Type: Spontaneous
  Country: US (occurrence: US)
  Receive Date: 20200116
  Receipt Date: 20200116
  Transmission Date: 20200409
  Serious: Yes (Death, Life-Threatening, Hospitalization, Other)
  Sender: FDA-Public Use
  Company Number: None

PATIENT
  Age: 17 Year
  Sex: Female
  Weight: 47 kg

DRUGS (1)
  1. BACTRIM [Suspect]
     Active Substance: SULFAMETHOXAZOLE\TRIMETHOPRIM
     Indication: ACNE
     Route: 048
     Dates: start: 20140923, end: 20141013

REACTIONS (9)
  - Lymphadenopathy [None]
  - Infectious mononucleosis [None]
  - Pleural effusion [None]
  - Malaise [None]
  - Arthropod bite [None]
  - Dyspnoea [None]
  - Oxygen saturation decreased [None]
  - Oropharyngeal pain [None]
  - Hypoxia [None]

NARRATIVE: CASE EVENT DATE: 20141014
